FAERS Safety Report 18894932 (Version 3)
Quarter: 2021Q1

REPORT INFORMATION
  Report Type: Spontaneous
  Country: US (occurrence: US)
  Receive Date: 20210216
  Receipt Date: 20210327
  Transmission Date: 20210420
  Serious: No
  Sender: FDA-Public Use
  Company Number: US-ELI_LILLY_AND_COMPANY-US202102003341

PATIENT
  Age: 26 Year
  Sex: Female
  Weight: 97.5 kg

DRUGS (4)
  1. AMBRISENTAN [Suspect]
     Active Substance: AMBRISENTAN
     Indication: PULMONARY ARTERIAL HYPERTENSION
     Dosage: 10 MG, DAILY
     Route: 065
     Dates: start: 20200819, end: 202101
  2. REMODULIN [Suspect]
     Active Substance: TREPROSTINIL
     Dosage: 0.1 UG/KG, OTHER
     Route: 058
  3. ADCIRCA [Suspect]
     Active Substance: TADALAFIL
     Indication: PULMONARY ARTERIAL HYPERTENSION
     Dosage: UNK, UNKNOWN
     Route: 065
  4. REMODULIN [Suspect]
     Active Substance: TREPROSTINIL
     Indication: PULMONARY ARTERIAL HYPERTENSION
     Dosage: 0.078 UG/KG, OTHER
     Route: 058
     Dates: start: 20200318

REACTIONS (5)
  - Flushing [Recovered/Resolved]
  - Pain in jaw [Recovered/Resolved]
  - Toothache [Unknown]
  - Headache [Recovered/Resolved]
  - Dizziness [Unknown]

NARRATIVE: CASE EVENT DATE: 202101
